FAERS Safety Report 18973227 (Version 1)
Quarter: 2021Q1

REPORT INFORMATION
  Report Type: Spontaneous
  Country: GB (occurrence: GB)
  Receive Date: 20210305
  Receipt Date: 20210305
  Transmission Date: 20210420
  Serious: Yes (Hospitalization, Disabling, Other)
  Sender: FDA-Public Use
  Company Number: GB-ACCORD-218759

PATIENT
  Age: 42 Year
  Sex: Female

DRUGS (4)
  1. CLOBAZAM. [Concomitant]
     Active Substance: CLOBAZAM
     Dosage: AT NIGHT
  2. FLUOXETINE [Suspect]
     Active Substance: FLUOXETINE HYDROCHLORIDE
     Indication: DEPRESSION
     Dosage: INCREASED FROM 40MG OD TO 60MG OD ON 6/10/2020 ? BY GP
     Route: 048
     Dates: start: 2004
  3. ESTRADIOL. [Concomitant]
     Active Substance: ESTRADIOL
  4. LAMOTRIGINE. [Concomitant]
     Active Substance: LAMOTRIGINE

REACTIONS (7)
  - Hallucination [Unknown]
  - Euphoric mood [Unknown]
  - Acute stress disorder [Recovered/Resolved]
  - Malaise [Unknown]
  - Aggression [Unknown]
  - Confusional state [Unknown]
  - Abnormal behaviour [Unknown]

NARRATIVE: CASE EVENT DATE: 20201022
